FAERS Safety Report 10228786 (Version 2)
Quarter: 2014Q3

REPORT INFORMATION
  Report Type: Report from Study
  Country: CA (occurrence: CA)
  Receive Date: 20140610
  Receipt Date: 20140811
  Transmission Date: 20150326
  Serious: Yes (Other)
  Sender: FDA-Public Use
  Company Number: CA-BRISTOL-MYERS SQUIBB COMPANY-20937827

PATIENT
  Age: 62 Year
  Sex: Female

DRUGS (10)
  1. IBUPROFEN. [Concomitant]
     Active Substance: IBUPROFEN
  2. ORENCIA [Suspect]
     Active Substance: ABATACEPT
     Indication: RHEUMATOID ARTHRITIS
     Route: 042
     Dates: start: 20130305
  3. PREDNISONE. [Concomitant]
     Active Substance: PREDNISONE
  4. FORMOTEROL [Concomitant]
     Active Substance: FORMOTEROL
  5. LOSEC [Concomitant]
     Active Substance: OMEPRAZOLE
  6. PLAQUENIL [Concomitant]
     Active Substance: HYDROXYCHLOROQUINE SULFATE
  7. VENTOLIN [Concomitant]
     Active Substance: ALBUTEROL SULFATE
  8. NORVASC [Concomitant]
     Active Substance: AMLODIPINE BESYLATE
  9. ATACAND [Concomitant]
     Active Substance: CANDESARTAN CILEXETIL
  10. AMITRIPTYLINE [Concomitant]
     Active Substance: AMITRIPTYLINE

REACTIONS (6)
  - Intervertebral discitis [Unknown]
  - Spinal column stenosis [Unknown]
  - Sciatica [Unknown]
  - Nerve compression [Unknown]
  - Osteomyelitis [Unknown]
  - Rheumatoid arthritis [Unknown]

NARRATIVE: CASE EVENT DATE: 2014
